FAERS Safety Report 5469224-9 (Version None)
Quarter: 2007Q3

REPORT INFORMATION
  Report Type: 
  Country: None (occurrence: None)
  Receive Date: 20070927
  Receipt Date: 20070917
  Transmission Date: 20080115
  Serious: Yes (Hospitalization)
  Sender: FDA-Public Use
  Company Number: US-JNJFOC-20070802695

PATIENT
  Sex: Male
  Weight: 53.52 kg

DRUGS (4)
  1. TMC125 [Suspect]
     Indication: HIV INFECTION
     Dosage: TEMPORARILY STOPPED
     Route: 048
  2. PREZISTA [Suspect]
     Indication: HIV INFECTION
     Route: 048
  3. NORVIR [Suspect]
     Indication: HIV INFECTION
     Route: 048
  4. MK-0518 [Suspect]
     Indication: HIV INFECTION
     Route: 048

REACTIONS (2)
  - DEHYDRATION [None]
  - DIARRHOEA [None]
